FAERS Safety Report 13006012 (Version 1)
Quarter: 2016Q4

REPORT INFORMATION
  Report Type: Report from Study
  Country: US (occurrence: US)
  Receive Date: 20161207
  Receipt Date: 20161207
  Transmission Date: 20170207
  Serious: Yes (Other)
  Sender: FDA-Public Use
  Company Number: PHHY2016US118788

PATIENT
  Age: 59 Year
  Sex: Female

DRUGS (21)
  1. DDAVP [Concomitant]
     Active Substance: DESMOPRESSIN ACETATE
     Dosage: 0.05 MG, QD
     Route: 048
     Dates: start: 20150515, end: 201507
  2. DDAVP [Concomitant]
     Active Substance: DESMOPRESSIN ACETATE
     Indication: DIABETES INSIPIDUS
     Dosage: 0.05 MG, QD
     Route: 048
     Dates: start: 20141107, end: 20150211
  3. SODIUM CHLORIDE. [Concomitant]
     Active Substance: SODIUM CHLORIDE
     Dosage: 40 ML, PRN
     Route: 045
     Dates: start: 201607
  4. SOMATROPIN [Concomitant]
     Active Substance: SOMATROPIN
     Dosage: 0.2 MG, QD
     Route: 048
     Dates: start: 20121002, end: 20150513
  5. VITAMIN D [Concomitant]
     Active Substance: CHOLECALCIFEROL
     Indication: OSTEOPENIA
     Dosage: 2000 IU, QD
     Route: 048
     Dates: start: 201508
  6. AMBIEN [Concomitant]
     Active Substance: ZOLPIDEM TARTRATE
     Dosage: 10 MG, PRN
     Route: 048
     Dates: start: 2009, end: 20141106
  7. SIGNIFOR [Suspect]
     Active Substance: PASIREOTIDE
     Dosage: 0.3 MG, QD
     Route: 058
     Dates: start: 20140806
  8. SOMATROPIN [Concomitant]
     Active Substance: SOMATROPIN
     Dosage: 0.2 MG, QD
     Route: 058
     Dates: start: 20121002, end: 20140513
  9. AMBIEN [Concomitant]
     Active Substance: ZOLPIDEM TARTRATE
     Indication: INSOMNIA
     Dosage: 5 MG, PRN
     Route: 048
     Dates: start: 20141107
  10. SIGNIFOR [Suspect]
     Active Substance: PASIREOTIDE
     Indication: CUSHING^S SYNDROME
     Dosage: 0.3 MG, QD
     Route: 058
     Dates: start: 20140414, end: 20140427
  11. DDAVP [Concomitant]
     Active Substance: DESMOPRESSIN ACETATE
     Dosage: 0.1 MG, QD
     Route: 048
     Dates: start: 20141107, end: 20150211
  12. ELAVIL [Concomitant]
     Active Substance: AMITRIPTYLINE HYDROCHLORIDE
     Indication: INSOMNIA
     Dosage: 20 MG, PRN
     Route: 048
     Dates: start: 20131030
  13. XANAX [Concomitant]
     Active Substance: ALPRAZOLAM
     Indication: ANXIETY
     Dosage: 0.5 MG, PRN
     Route: 048
     Dates: start: 2009
  14. SODIUM CHLORIDE. [Concomitant]
     Active Substance: SODIUM CHLORIDE
     Indication: CHRONIC SINUSITIS
     Dosage: 40 ML, BID (IRRIGATION)
     Route: 045
     Dates: start: 20140516, end: 201607
  15. ZESTORETIC [Concomitant]
     Active Substance: HYDROCHLOROTHIAZIDE\LISINOPRIL
     Indication: HYPERTENSION
     Dosage: 10-12.5 MG, QD
     Route: 048
     Dates: start: 20161010
  16. ALEVE [Concomitant]
     Active Substance: NAPROXEN SODIUM
     Indication: PAIN
     Dosage: 220 MG, PRN
     Route: 048
     Dates: start: 201609, end: 201610
  17. DDAVP [Concomitant]
     Active Substance: DESMOPRESSIN ACETATE
     Dosage: 0.05 MG, PRN
     Route: 048
     Dates: start: 201607
  18. DDAVP [Concomitant]
     Active Substance: DESMOPRESSIN ACETATE
     Dosage: 0.05 MG, BID
     Route: 048
     Dates: start: 20150212, end: 20160501
  19. SOMATROPIN [Concomitant]
     Active Substance: SOMATROPIN
     Indication: GROWTH HORMONE DEFICIENCY
     Dosage: 0.6 MG, UNK (OTHER)
     Route: 058
     Dates: start: 20150514, end: 20160812
  20. SIGNIFOR [Suspect]
     Active Substance: PASIREOTIDE
     Dosage: 0.3 MG, BID
     Route: 058
     Dates: start: 20140428, end: 20140623
  21. MULTIVITAMINS [Concomitant]
     Active Substance: VITAMINS
     Indication: PRODUCT USED FOR UNKNOWN INDICATION
     Dosage: 1 DF, QD
     Route: 048
     Dates: start: 2007

REACTIONS (8)
  - Blood cholesterol increased [Unknown]
  - Diarrhoea [Unknown]
  - Low density lipoprotein increased [Unknown]
  - Liver function test abnormal [Unknown]
  - Hyperlipidaemia [Not Recovered/Not Resolved]
  - Glucose tolerance impaired [Unknown]
  - Basal cell carcinoma [Recovered/Resolved]
  - Blood triglycerides increased [Unknown]

NARRATIVE: CASE EVENT DATE: 20140512
